FAERS Safety Report 21580001 (Version 2)
Quarter: 2023Q2

REPORT INFORMATION
  Report Type: Report from Study
  Country: FR (occurrence: FR)
  Receive Date: 20221110
  Receipt Date: 20230420
  Transmission Date: 20230722
  Serious: Yes (Hospitalization)
  Sender: FDA-Public Use
  Company Number: FR-GILEAD-2022-0603096

PATIENT
  Sex: Female
  Weight: 70 kg

DRUGS (5)
  1. SACITUZUMAB GOVITECAN [Suspect]
     Active Substance: SACITUZUMAB GOVITECAN
     Indication: Neoplasm
     Dosage: 700 MG, EVERY 3W
     Route: 042
     Dates: start: 20221021, end: 20221021
  2. SACITUZUMAB GOVITECAN [Suspect]
     Active Substance: SACITUZUMAB GOVITECAN
     Dosage: 7.5 MG/KG
     Route: 042
     Dates: start: 20221108
  3. ONDANSETRON [Concomitant]
     Active Substance: ONDANSETRON
  4. PRIMPERAN [Concomitant]
     Active Substance: METOCLOPRAMIDE HYDROCHLORIDE
  5. DOLIPRANE [Concomitant]
     Active Substance: ACETAMINOPHEN

REACTIONS (2)
  - Gastrointestinal toxicity [Recovered/Resolved]
  - Neutropenia [Recovered/Resolved]

NARRATIVE: CASE EVENT DATE: 20221028
